FAERS Safety Report 7920759-6 (Version None)
Quarter: 2011Q4

REPORT INFORMATION
  Report Type: 
  Country: None (occurrence: None)
  Receive Date: 20111117
  Receipt Date: 20111107
  Transmission Date: 20120403
  Serious: Yes (Death)
  Sender: FDA-Public Use
  Company Number: IN-MILLENNIUM PHARMACEUTICALS, INC.-2011-05361

PATIENT

DRUGS (4)
  1. MELPHALAN HYDROCHLORIDE [Concomitant]
     Indication: MULTIPLE MYELOMA
     Dosage: 200 MG/M2, UNK
  2. VELCADE [Suspect]
     Indication: MULTIPLE MYELOMA
     Dosage: 1.3 MG/M2, CYCLIC
  3. DEXAMETHASONE [Suspect]
     Indication: MULTIPLE MYELOMA
     Dosage: 40 MG, CYCLIC
  4. NEUPOGEN [Concomitant]
     Indication: STEM CELL TRANSPLANT
     Dosage: 300 MG/KG, BID

REACTIONS (1)
  - DEATH [None]
